FAERS Safety Report 21569808 (Version 1)
Quarter: 2022Q4

REPORT INFORMATION
  Report Type: Spontaneous
  Country: US (occurrence: US)
  Receive Date: 20221109
  Receipt Date: 20221109
  Transmission Date: 20230113
  Serious: No
  Sender: FDA-Public Use
  Company Number: US-JNJFOC-20221110830

PATIENT
  Age: 14 Month
  Sex: Female
  Weight: 12.258 kg

DRUGS (1)
  1. MOTRIN INFANTS [Suspect]
     Active Substance: IBUPROFEN
     Indication: Teething
     Route: 065

REACTIONS (1)
  - Incorrect dose administered [Unknown]
